FAERS Safety Report 18997598 (Version 1)
Quarter: 2021Q1

REPORT INFORMATION
  Report Type: Spontaneous
  Country: TW (occurrence: TW)
  Receive Date: 20210311
  Receipt Date: 20210311
  Transmission Date: 20210420
  Serious: Yes (Other)
  Sender: FDA-Public Use
  Company Number: TW-ASTRAZENECA-2021A109768

PATIENT
  Sex: Male
  Weight: 76 kg

DRUGS (2)
  1. FORXIGA [Suspect]
     Active Substance: DAPAGLIFLOZIN
     Route: 048
     Dates: start: 20210119
  2. TAREG [Concomitant]
     Active Substance: VALSARTAN

REACTIONS (2)
  - Diabetic ketoacidosis [Unknown]
  - Cellulitis [Unknown]
